FAERS Safety Report 9535540 (Version 1)
Quarter: 2013Q3

REPORT INFORMATION
  Report Type: Spontaneous
  Country: CO (occurrence: CO)
  Receive Date: 20130919
  Receipt Date: 20130919
  Transmission Date: 20140515
  Serious: Yes (Death, Hospitalization, Other)
  Sender: FDA-Public Use
  Company Number: CO-AMGEN-COLSP2013065644

PATIENT
  Age: 66 Year
  Sex: Male

DRUGS (2)
  1. ENBREL [Suspect]
     Indication: RHEUMATOID ARTHRITIS
     Dosage: 50 MG, WEEKLY
     Route: 058
     Dates: start: 201209, end: 20130709
  2. METHOTREXATE [Concomitant]
     Indication: RHEUMATOID ARTHRITIS
     Dosage: 3 OR 4 TABLETS WEEKLY
     Route: 048

REACTIONS (5)
  - Respiratory arrest [Fatal]
  - Dyspnoea [Unknown]
  - Vision blurred [Unknown]
  - Pallor [Unknown]
  - Cataract [Unknown]
